FAERS Safety Report 23259268 (Version 2)
Quarter: 2023Q4

REPORT INFORMATION
  Report Type: Spontaneous
  Country: US (occurrence: US)
  Receive Date: 20231204
  Receipt Date: 20231218
  Transmission Date: 20240109
  Serious: Yes (Hospitalization)
  Sender: FDA-Public Use
  Company Number: US-Calliditas-2023CAL01546

PATIENT
  Age: 70 Year
  Sex: Male
  Weight: 99.5 kg

DRUGS (3)
  1. TARPEYO [Suspect]
     Active Substance: BUDESONIDE
     Indication: IgA nephropathy
     Dosage: 16 MG (4 MG CAPSULES) ONCE DAILY
     Route: 048
     Dates: start: 20230708
  2. CIPROFLOXACIN [Concomitant]
     Active Substance: CIPROFLOXACIN
     Indication: Infection
  3. AMOXICILLIN [Concomitant]
     Active Substance: AMOXICILLIN
     Indication: Infection

REACTIONS (4)
  - Product dose omission issue [Recovered/Resolved]
  - Flatulence [Recovered/Resolved]
  - Haematochezia [Recovered/Resolved]
  - Gastrointestinal disorder [Recovered/Resolved]

NARRATIVE: CASE EVENT DATE: 20231116
